FAERS Safety Report 7382745-7 (Version None)
Quarter: 2011Q1

REPORT INFORMATION
  Report Type: 
  Country: None (occurrence: None)
  Receive Date: 20110330
  Receipt Date: 20110317
  Transmission Date: 20110831
  Serious: Yes (Other)
  Sender: FDA-Public Use
  Company Number: US-BIOGENIDEC-2011BI010199

PATIENT
  Sex: Female

DRUGS (3)
  1. AVONEX [Concomitant]
     Route: 030
     Dates: start: 20000201
  2. TYSABRI [Suspect]
     Indication: MULTIPLE SCLEROSIS
     Route: 042
     Dates: start: 20070219, end: 20110211
  3. AVONEX [Concomitant]
     Indication: MULTIPLE SCLEROSIS
     Route: 030

REACTIONS (2)
  - PROGRESSIVE MULTIFOCAL LEUKOENCEPHALOPATHY [None]
  - DEPRESSION [None]
